FAERS Safety Report 15888485 (Version 1)
Quarter: 2019Q1

REPORT INFORMATION
  Report Type: Spontaneous
  Country: US (occurrence: US)
  Receive Date: 20190129
  Receipt Date: 20190129
  Transmission Date: 20190417
  Serious: Yes (Hospitalization)
  Sender: FDA-Public Use
  Company Number: None

PATIENT
  Age: 20 Year
  Sex: Female
  Weight: 99.8 kg

DRUGS (1)
  1. GADOBENATE DIMEGLUMINE [Suspect]
     Active Substance: GADOBENATE DIMEGLUMINE
     Route: 041

REACTIONS (8)
  - Infusion related reaction [None]
  - Pain [None]
  - Loss of consciousness [None]
  - Contrast media reaction [None]
  - Vomiting [None]
  - Nausea [None]
  - Stress [None]
  - Hypoaesthesia [None]

NARRATIVE: CASE EVENT DATE: 20180728
